FAERS Safety Report 9945322 (Version 1)
Quarter: 2014Q1

REPORT INFORMATION
  Report Type: Report from Study
  Country: US (occurrence: US)
  Receive Date: 20140303
  Receipt Date: 20140303
  Transmission Date: 20141002
  Serious: Yes (Other)
  Sender: FDA-Public Use
  Company Number: US-ABBVIE-13P-163-1051650-00

PATIENT
  Sex: Female
  Weight: 49.94 kg

DRUGS (1)
  1. HUMIRA [Suspect]
     Indication: RHEUMATOID ARTHRITIS
     Dates: start: 200607, end: 200702

REACTIONS (8)
  - Nasal septal operation [Unknown]
  - Limb operation [Unknown]
  - Joint arthroplasty [Unknown]
  - Local swelling [Unknown]
  - Histoplasmosis [Recovered/Resolved]
  - Local swelling [Not Recovered/Not Resolved]
  - Breast lump removal [Unknown]
  - Rash [Recovered/Resolved]
